FAERS Safety Report 8575930-X (Version None)
Quarter: 2012Q3

REPORT INFORMATION
  Report Type: 
  Country: None (occurrence: None)
  Receive Date: 20120807
  Receipt Date: 20120801
  Transmission Date: 20120928
  Serious: No
  Sender: FDA-Public Use
  Company Number: US-PFIZER INC-2012176283

PATIENT
  Age: 60 Year
  Sex: Female
  Weight: 58.957 kg

DRUGS (4)
  1. SAM-E [Interacting]
  2. VALERIAN ROOT [Interacting]
     Dosage: UNK
  3. LYRICA [Suspect]
     Indication: HERPES ZOSTER
     Dosage: 50 MG, 3X/DAY
     Dates: start: 20120601
  4. LYRICA [Interacting]
     Dosage: 50 MG, 4X/DAY
     Dates: start: 20120101

REACTIONS (11)
  - DRUG INEFFECTIVE [None]
  - INCORRECT DOSE ADMINISTERED [None]
  - IRRITABILITY [None]
  - AGITATION [None]
  - HOSTILITY [None]
  - INCREASED APPETITE [None]
  - CONDITION AGGRAVATED [None]
  - DRUG INTERACTION [None]
  - POST HERPETIC NEURALGIA [None]
  - EUPHORIC MOOD [None]
  - PSYCHOMOTOR HYPERACTIVITY [None]
